FAERS Safety Report 22102011 (Version 1)
Quarter: 2023Q1

REPORT INFORMATION
  Report Type: Spontaneous
  Country: US (occurrence: None)
  Receive Date: 20230315
  Receipt Date: 20230315
  Transmission Date: 20230417
  Serious: Yes (Hospitalization, Other)
  Sender: FDA-Public Use
  Company Number: None

PATIENT
  Age: 75 Year
  Sex: Male
  Weight: 84.6 kg

DRUGS (16)
  1. BARICITINIB [Suspect]
     Active Substance: BARICITINIB
     Indication: COVID-19 pneumonia
     Dosage: OTHER ROUTE : INJECTED  STOMACH FOR 7 DAYS THAN PILLS;?
     Route: 050
     Dates: start: 20220106, end: 20220120
  2. BENICAR [Concomitant]
     Active Substance: OLMESARTAN MEDOXOMIL
  3. SINGULAIR [Concomitant]
     Active Substance: MONTELUKAST SODIUM
  4. Provastin (new last 2 weeks) [Concomitant]
  5. FLOVENT [Concomitant]
     Active Substance: FLUTICASONE PROPIONATE
  6. CLARITIN [Concomitant]
     Active Substance: LORATADINE
  7. Vit, C [Concomitant]
  8. QUERCETIN [Concomitant]
     Active Substance: QUERCETIN
  9. ZINC [Concomitant]
     Active Substance: ZINC
  10. VITAMIN D3 [Concomitant]
     Active Substance: CHOLECALCIFEROL
  11. VITAMINS [Concomitant]
     Active Substance: VITAMINS
  12. PROBIOTICS NOS [Concomitant]
     Active Substance: PROBIOTICS NOS
  13. VITAMIN B6 [Concomitant]
     Active Substance: PYRIDOXINE HYDROCHLORIDE
  14. VITAMIN B12 [Concomitant]
     Active Substance: CYANOCOBALAMIN
  15. OMEGA 3 [Concomitant]
     Active Substance: CAPSAICIN
  16. ASPIRIN [Concomitant]
     Active Substance: ASPIRIN

REACTIONS (2)
  - Pollakiuria [None]
  - Fatigue [None]

NARRATIVE: CASE EVENT DATE: 20220106
